FAERS Safety Report 26088366 (Version 1)
Quarter: 2025Q4

REPORT INFORMATION
  Report Type: Spontaneous
  Country: US (occurrence: None)
  Receive Date: 20251125
  Receipt Date: 20251125
  Transmission Date: 20260118
  Serious: Yes (Hospitalization)
  Sender: FDA-CTU
  Company Number: None

PATIENT
  Age: 87 Year
  Sex: Male
  Weight: 71.3 kg

DRUGS (1)
  1. LUSPATERCEPT [Suspect]
     Active Substance: LUSPATERCEPT
     Dosage: OTHER FREQUENCY : Q3W;?
     Route: 058
     Dates: start: 20250828

REACTIONS (8)
  - Asthenia [None]
  - Lethargy [None]
  - Pyrexia [None]
  - Hypotension [None]
  - Cerebral atrophy [None]
  - Cerebral ischaemia [None]
  - Cardiomegaly [None]
  - Mental status changes [None]

NARRATIVE: CASE EVENT DATE: 20250924
